FAERS Safety Report 16455556 (Version 1)
Quarter: 2019Q2

REPORT INFORMATION
  Report Type: Spontaneous
  Country: US (occurrence: US)
  Receive Date: 20190619
  Receipt Date: 20190619
  Transmission Date: 20190711
  Serious: No
  Sender: FDA-Public Use
  Company Number: US-ROCHE-2167275

PATIENT
  Sex: Female

DRUGS (14)
  1. METHIMAZOLE. [Concomitant]
     Active Substance: METHIMAZOLE
  2. FIORINAL (UNITED STATES) [Concomitant]
  3. RECLAST [Concomitant]
     Active Substance: ZOLEDRONIC ACID
  4. ZOFRAN [Concomitant]
     Active Substance: ONDANSETRON HYDROCHLORIDE
  5. ASPIRIN [ACETYLSALICYLIC ACID] [Concomitant]
     Active Substance: ASPIRIN
  6. ACTEMRA [Suspect]
     Active Substance: TOCILIZUMAB
     Indication: SENILE OSTEOPOROSIS
     Dosage: WEEKLY, ON HOLD
     Route: 058
     Dates: start: 20180214
  7. SPIRIVA [Concomitant]
     Active Substance: TIOTROPIUM BROMIDE MONOHYDRATE
  8. VITAMIN E NOS [Concomitant]
     Active Substance: .ALPHA.-TOCOPHEROL
  9. FLUCONAZOLE. [Concomitant]
     Active Substance: FLUCONAZOLE
  10. PREDNISONE. [Concomitant]
     Active Substance: PREDNISONE
  11. METOPROLOL TARTRATE. [Concomitant]
     Active Substance: METOPROLOL TARTRATE
  12. CALCIUM CARBONATE. [Concomitant]
     Active Substance: CALCIUM CARBONATE
  13. AMLODIPINE [Concomitant]
     Active Substance: AMLODIPINE BESYLATE
  14. PANTOPRAZOLE SODIUM. [Concomitant]
     Active Substance: PANTOPRAZOLE SODIUM

REACTIONS (3)
  - Intentional product use issue [Unknown]
  - Off label use [Unknown]
  - No adverse event [Unknown]
